FAERS Safety Report 6304962-7 (Version None)
Quarter: 2009Q3

REPORT INFORMATION
  Report Type: 
  Country: None (occurrence: None)
  Receive Date: 20090811
  Receipt Date: 20090730
  Transmission Date: 20100115
  Serious: Yes (Death)
  Sender: FDA-Public Use
  Company Number: JP-ABBOTT-09P-087-0566715-00

PATIENT
  Age: 81 Year
  Sex: Male

DRUGS (21)
  1. LEUPLIN SR FOR INJECTION 11.25 MG [Suspect]
     Indication: PROSTATE CANCER STAGE IV
     Route: 058
     Dates: start: 20061107, end: 20071009
  2. LEUPLIN SR FOR INJECTION 11.25 MG [Suspect]
     Dosage: RECEIVED 2 DOSES
     Dates: start: 20060908, end: 20061003
  3. CASODEX [Concomitant]
     Indication: PROSTATE CANCER STAGE IV
     Route: 048
     Dates: start: 20060902, end: 20060908
  4. CASODEX [Concomitant]
     Route: 048
     Dates: start: 20070306, end: 20070319
  5. ESTRAMUSTINE PHOSPHATE SODIUM [Concomitant]
     Indication: PROSTATE CANCER STAGE IV
     Route: 048
     Dates: start: 20070320
  6. DEPAS [Concomitant]
     Indication: DEPRESSION
     Route: 048
  7. DOGMATYL [Concomitant]
     Indication: DEPRESSION
     Route: 048
  8. URSO 250 [Concomitant]
     Indication: HEPATIC CIRRHOSIS
     Route: 048
  9. GLYCYRON [Concomitant]
     Indication: HEPATIC CIRRHOSIS
     Route: 048
  10. BERIZYM [Concomitant]
     Indication: GASTROINTESTINAL DISORDER
     Route: 048
  11. GASMOTIN [Concomitant]
     Indication: GASTROINTESTINAL DISORDER
     Route: 048
  12. DAIKENTYUTO [Concomitant]
     Indication: GASTROINTESTINAL DISORDER
     Route: 048
  13. PURSENNID [Concomitant]
     Indication: GASTROINTESTINAL DISORDER
     Route: 048
  14. ALOSENN [Concomitant]
     Indication: GASTROINTESTINAL DISORDER
     Route: 048
  15. ZANTAC [Concomitant]
     Indication: GASTROINTESTINAL DISORDER
     Route: 048
  16. GASTROM [Concomitant]
     Indication: GASTROINTESTINAL DISORDER
     Route: 048
  17. LENDORMIN [Concomitant]
     Indication: INSOMNIA
     Route: 048
  18. HALFDIGOXIN [Concomitant]
     Indication: CARDIAC FAILURE
     Route: 048
  19. DECADRON [Concomitant]
     Indication: PROSTATE CANCER STAGE IV
     Route: 048
     Dates: start: 20070717
  20. MUCODYNE [Concomitant]
     Indication: GASTROINTESTINAL DISORDER
     Route: 048
     Dates: start: 20070815
  21. LASIX [Concomitant]
     Indication: OEDEMA
     Dates: start: 20070814, end: 20070910

REACTIONS (3)
  - ASPIRATION [None]
  - HEPATIC NEOPLASM MALIGNANT [None]
  - HEPATIC RUPTURE [None]
